FAERS Safety Report 12472714 (Version 1)
Quarter: 2016Q2

REPORT INFORMATION
  Report Type: Spontaneous
  Country: CA (occurrence: CA)
  Receive Date: 20160616
  Receipt Date: 20160616
  Transmission Date: 20160815
  Serious: No
  Sender: FDA-Public Use
  Company Number: CA-JAZZ-2015-CA-021000

PATIENT
  Age: 37 Year
  Sex: Male

DRUGS (5)
  1. XYREM [Suspect]
     Active Substance: SODIUM OXYBATE
     Dosage: 6 G, BID
     Route: 048
     Dates: start: 20100407
  2. XYREM [Suspect]
     Active Substance: SODIUM OXYBATE
     Dosage: 9 G, BID
     Route: 048
     Dates: start: 20100224
  3. XYREM [Suspect]
     Active Substance: SODIUM OXYBATE
     Indication: CATAPLEXY
     Dosage: 2.25 G, BID
     Route: 048
     Dates: start: 200906, end: 20090817
  4. XYREM [Suspect]
     Active Substance: SODIUM OXYBATE
     Dosage: 2.25 G, BID
     Route: 048
     Dates: start: 201002
  5. XYREM [Suspect]
     Active Substance: SODIUM OXYBATE
     Dosage: 12 G TO 15 G TOTAL NIGHTLY DOSE DIVIDED IN TWO EQUAL DOSES (QHS AND 2.5 -
     Route: 048
     Dates: start: 20150903

REACTIONS (2)
  - Intentional product misuse [Unknown]
  - Prescribed overdose [Unknown]

NARRATIVE: CASE EVENT DATE: 20100224
